FAERS Safety Report 18200535 (Version 1)
Quarter: 2020Q3

REPORT INFORMATION
  Report Type: Spontaneous
  Country: IT (occurrence: IT)
  Receive Date: 20200826
  Receipt Date: 20200826
  Transmission Date: 20201103
  Serious: Yes (Other)
  Sender: FDA-Public Use
  Company Number: IT-ELI_LILLY_AND_COMPANY-IT201903004618

PATIENT
  Sex: Male

DRUGS (3)
  1. IMMUTREX [Concomitant]
     Indication: RHEUMATOID ARTHRITIS
     Dosage: 12.5 MG
     Route: 065
     Dates: start: 20180302, end: 20180831
  2. OLUMIANT [Suspect]
     Active Substance: BARICITINIB
     Indication: RHEUMATOID ARTHRITIS
     Dosage: 4 MG, UNKNOWN
     Route: 065
     Dates: start: 20180802, end: 20181223
  3. IMMUTREX [Concomitant]
     Dosage: 10 MG, UNKNOWN
     Route: 065
     Dates: start: 20180901, end: 20181213

REACTIONS (12)
  - Tonsillar hypertrophy [Unknown]
  - Swollen tongue [Unknown]
  - Dysphagia [Unknown]
  - Varicose vein [Unknown]
  - Psychological trauma [Unknown]
  - Gastrooesophageal reflux disease [Unknown]
  - Nasopharyngitis [Unknown]
  - Nasopharyngitis [Not Recovered/Not Resolved]
  - Salivary gland disorder [Unknown]
  - Taste disorder [Unknown]
  - Productive cough [Unknown]
  - Nausea [Unknown]
